FAERS Safety Report 18080894 (Version 1)
Quarter: 2020Q3

REPORT INFORMATION
  Report Type: Spontaneous
  Country: CA (occurrence: CA)
  Receive Date: 20200728
  Receipt Date: 20200728
  Transmission Date: 20201103
  Serious: Yes (Death, Other)
  Sender: FDA-Public Use
  Company Number: CA-PFIZER INC-2019311274

PATIENT
  Age: 52 Year
  Sex: Female
  Weight: 64.6 kg

DRUGS (1)
  1. SUTENT [Suspect]
     Active Substance: SUNITINIB MALATE
     Indication: METASTATIC RENAL CELL CARCINOMA
     Dosage: 37.5 MG, CYCLIC (FOR 14 DAYS, THEN OFF FOR 7 DAYS, THEN REPEAT CYCLE)
     Route: 048
     Dates: start: 20190720

REACTIONS (1)
  - Death [Fatal]
